FAERS Safety Report 9639112 (Version 2)
Quarter: 2013Q4

REPORT INFORMATION
  Report Type: Spontaneous
  Country: US (occurrence: None)
  Receive Date: 20131009
  Receipt Date: 20131017
  Transmission Date: 20140711
  Serious: Yes (Death)
  Sender: FDA-Public Use
  Company Number: 2013038249

PATIENT
  Age: 66 Year
  Sex: Female

DRUGS (3)
  1. PRIVIGEN [Suspect]
     Indication: CHRONIC LYMPHOCYTIC LEUKAEMIA
     Dosage: 20 G TOTAL, INFUSIN RATE: MIN:1.66,MAX:1.66
     Route: 042
     Dates: start: 20130214, end: 20130214
  2. METOPROLOL(METOPROLOL) [Concomitant]
  3. RAMIPRIL(RAMIPRIL) [Concomitant]

REACTIONS (6)
  - No adverse event [None]
  - Toxic epidermal necrolysis [None]
  - Graft versus host disease in intestine [None]
  - Renal failure acute [None]
  - Hepatitis fulminant [None]
  - Multi-organ failure [None]
